FAERS Safety Report 5803142-9 (Version None)
Quarter: 2008Q3

REPORT INFORMATION
  Report Type: 
  Country: None (occurrence: None)
  Receive Date: 20080708
  Receipt Date: 20080627
  Transmission Date: 20090109
  Serious: Yes (Other)
  Sender: FDA-Public Use
  Company Number: US-MERCK-0705USA02503

PATIENT
  Age: 75 Year
  Sex: Female

DRUGS (3)
  1. FOSAMAX [Suspect]
     Indication: OSTEOPOROSIS
     Route: 048
     Dates: start: 19980828, end: 20060101
  2. FOSAMAX [Suspect]
     Route: 048
     Dates: start: 19990422, end: 20010422
  3. FOSAMAX [Suspect]
     Route: 048
     Dates: start: 20010423

REACTIONS (16)
  - ARTHRALGIA [None]
  - BACK DISORDER [None]
  - CONTUSION [None]
  - DENTAL CARIES [None]
  - DRUG ADMINISTRATION ERROR [None]
  - EPISTAXIS [None]
  - GINGIVAL PAIN [None]
  - HYPERTENSION [None]
  - JOINT ARTHROPLASTY [None]
  - JOINT DISLOCATION [None]
  - JOINT SWELLING [None]
  - LIMB INJURY [None]
  - MOUTH INJURY [None]
  - OESOPHAGEAL INJURY [None]
  - RHEUMATOID ARTHRITIS [None]
  - TOOTHACHE [None]
